FAERS Safety Report 24681312 (Version 1)
Quarter: 2024Q4

REPORT INFORMATION
  Report Type: Spontaneous
  Country: SI (occurrence: SI)
  Receive Date: 20241129
  Receipt Date: 20241129
  Transmission Date: 20250114
  Serious: Yes (Other)
  Sender: MERCK
  Company Number: None

PATIENT
  Age: 64 Year
  Sex: Female
  Weight: 60 kg

DRUGS (1)
  1. JANUVIA [Suspect]
     Active Substance: SITAGLIPTIN PHOSPHATE
     Indication: Product used for unknown indication
     Dosage: 25 MILLIGRAM, QD (ALSO REPORTED AS 1X1)
     Route: 048
     Dates: start: 20230922, end: 20241108

REACTIONS (2)
  - Nephrolithiasis [Unknown]
  - Renal stone removal [Unknown]

NARRATIVE: CASE EVENT DATE: 20230922
